FAERS Safety Report 7123664-0 (Version None)
Quarter: 2010Q4

REPORT INFORMATION
  Report Type: 
  Country: None (occurrence: None)
  Receive Date: 20101125
  Receipt Date: 20101117
  Transmission Date: 20110411
  Serious: Yes (Other)
  Sender: FDA-Public Use
  Company Number: US-AMGEN-USASP2010005511

PATIENT

DRUGS (3)
  1. ENBREL [Suspect]
     Indication: PSORIATIC ARTHROPATHY
     Dosage: 50 MG, QWK
     Dates: start: 20061001, end: 20100601
  2. GOLIMUMAB [Concomitant]
     Indication: PSORIATIC ARTHROPATHY
  3. CYMBALTA [Suspect]

REACTIONS (9)
  - BLADDER DISORDER [None]
  - BONE PAIN [None]
  - GASTROINTESTINAL DISORDER [None]
  - HALLUCINATION [None]
  - HEADACHE [None]
  - HYPOAESTHESIA [None]
  - MIGRAINE [None]
  - PARAESTHESIA [None]
  - PSORIATIC ARTHROPATHY [None]
